FAERS Safety Report 4349421-6 (Version None)
Quarter: 2004Q2

REPORT INFORMATION
  Report Type: 
  Country: None (occurrence: None)
  Receive Date: 20040426
  Receipt Date: 20040415
  Transmission Date: 20050107
  Serious: Yes (Life-Threatening, Hospitalization)
  Sender: FDA-Public Use
  Company Number: 200410259BNE

PATIENT
  Age: 74 Year
  Sex: Male

DRUGS (11)
  1. CIPROFLOXACIN [Suspect]
     Indication: URINARY TRACT INFECTION
     Dosage: 500 MG, BID, ORAL
     Route: 048
     Dates: start: 20040331, end: 20040402
  2. CHLORPHENIRAMINE MALEATE [Suspect]
     Indication: RASH
     Dosage: 4 MG, QID, ORAL
     Route: 048
     Dates: start: 20040331, end: 20040401
  3. ASPIRIN [Concomitant]
  4. ATORVASTATIN [Concomitant]
  5. BISOPROLOL [Concomitant]
  6. CLOPIDOGREL [Concomitant]
  7. LACTULOSE [Concomitant]
  8. AMIODARONE [Concomitant]
  9. HYDRALAZINE HCL [Concomitant]
  10. TEMAZEPAM [Concomitant]
  11. TRIMETHOPRIM [Concomitant]

REACTIONS (2)
  - RESPIRATORY ARREST [None]
  - VENTRICULAR TACHYCARDIA [None]
